FAERS Safety Report 10947706 (Version 1)
Quarter: 2015Q1

REPORT INFORMATION
  Report Type: Spontaneous
  Country: FR (occurrence: FR)
  Receive Date: 20150324
  Receipt Date: 20150324
  Transmission Date: 20150721
  Serious: Yes (Other)
  Sender: FDA-Public Use
  Company Number: FR-009507513-1503FRA010486

PATIENT
  Age: 9 Month
  Weight: 13 kg

DRUGS (1)
  1. SINGULAIR [Suspect]
     Active Substance: MONTELUKAST SODIUM
     Dosage: UNK, QD (TOTAL DAILY DOSE: 4 MG)
     Route: 048
     Dates: start: 20130701, end: 20150210

REACTIONS (5)
  - Abnormal behaviour [Recovered/Resolved]
  - Attention deficit/hyperactivity disorder [Recovered/Resolved]
  - Affective disorder [Recovered/Resolved]
  - Middle insomnia [Recovered/Resolved]
  - Irritability [None]

NARRATIVE: CASE EVENT DATE: 2013
